FAERS Safety Report 8825725 (Version 8)
Quarter: 2016Q4

REPORT INFORMATION
  Report Type: Spontaneous
  Country: US (occurrence: US)
  Receive Date: 20121004
  Receipt Date: 20161005
  Transmission Date: 20170207
  Serious: Yes (Hospitalization, Disabling, Other)
  Sender: FDA-Public Use
  Company Number: US-009507513-1205USA00967

PATIENT
  Sex: Female
  Weight: 95.24 kg

DRUGS (4)
  1. ALENDRONATE SODIUM. [Suspect]
     Active Substance: ALENDRONATE SODIUM
     Indication: OSTEOPOROSIS
     Dosage: UNK, UNKNOWN
     Route: 048
  2. FOSAMAX [Suspect]
     Active Substance: ALENDRONATE SODIUM
     Dosage: UNK QD
     Route: 048
     Dates: start: 1995, end: 2009
  3. PREDNISONE. [Concomitant]
     Active Substance: PREDNISONE
     Indication: SARCOIDOSIS
     Dosage: UNK, UNKNOWN
     Route: 065
     Dates: start: 1995
  4. FOSAMAX [Suspect]
     Active Substance: ALENDRONATE SODIUM
     Indication: OSTEOPOROSIS
     Dosage: UNK QW
     Route: 048
     Dates: start: 1995, end: 2009

REACTIONS (55)
  - Chronic kidney disease [Not Recovered/Not Resolved]
  - Fall [Unknown]
  - Osteoarthritis [Not Recovered/Not Resolved]
  - Weight decreased [Unknown]
  - Rotator cuff syndrome [Unknown]
  - Ligament sprain [Unknown]
  - Joint range of motion decreased [Not Recovered/Not Resolved]
  - Fracture nonunion [Unknown]
  - Haemorrhagic anaemia [Unknown]
  - Gastritis [Unknown]
  - Tooth extraction [Unknown]
  - Open reduction of fracture [Unknown]
  - Presyncope [Unknown]
  - Intramedullary rod insertion [Unknown]
  - Femoral neck fracture [Unknown]
  - Tachycardia [Unknown]
  - Hepatitis [Unknown]
  - Bone disorder [Unknown]
  - Osteoporosis [Unknown]
  - Adverse event [Unknown]
  - Diabetes mellitus [Not Recovered/Not Resolved]
  - Pneumonia [Not Recovered/Not Resolved]
  - Retinal detachment [Unknown]
  - Osteoarthritis [Unknown]
  - Spinal column stenosis [Unknown]
  - Paraesthesia [Unknown]
  - Liver function test increased [Unknown]
  - Hypothyroidism [Unknown]
  - Gastrooesophageal reflux disease [Unknown]
  - Oesophagitis [Unknown]
  - Dysphagia [Unknown]
  - Femoral neck fracture [Not Recovered/Not Resolved]
  - Eye operation [Unknown]
  - Vomiting [Unknown]
  - Decreased appetite [Unknown]
  - Neuralgia [Unknown]
  - Lumbar radiculopathy [Unknown]
  - Cerebrovascular accident [Unknown]
  - Femur fracture [Recovering/Resolving]
  - Loss of consciousness [Unknown]
  - Internal fixation of fracture [Unknown]
  - Pain [Unknown]
  - Nocturia [Unknown]
  - Oedema peripheral [Unknown]
  - Orthopaedic procedure [Unknown]
  - Femur fracture [Unknown]
  - Hypotension [Unknown]
  - Hypertension [Not Recovered/Not Resolved]
  - Post-traumatic stress disorder [Unknown]
  - Arthralgia [Not Recovered/Not Resolved]
  - Nausea [Unknown]
  - Hyperlipidaemia [Not Recovered/Not Resolved]
  - Fall [Unknown]
  - Musculoskeletal chest pain [Unknown]
  - Headache [Not Recovered/Not Resolved]

NARRATIVE: CASE EVENT DATE: 1995
